FAERS Safety Report 25586451 (Version 1)
Quarter: 2025Q3

REPORT INFORMATION
  Report Type: Spontaneous
  Country: US (occurrence: None)
  Receive Date: 20250720
  Receipt Date: 20250720
  Transmission Date: 20251020
  Serious: No
  Sender: FDA-CTU
  Company Number: None

PATIENT
  Age: 57 Year
  Sex: Female
  Weight: 57.6 kg

DRUGS (2)
  1. PAXLOVID [Suspect]
     Active Substance: NIRMATRELVIR\RITONAVIR
  2. VITAMINS [Concomitant]
     Active Substance: VITAMINS

REACTIONS (2)
  - COVID-19 [None]
  - Condition aggravated [None]

NARRATIVE: CASE EVENT DATE: 20250716
